FAERS Safety Report 25402271 (Version 1)
Quarter: 2025Q2

REPORT INFORMATION
  Report Type: Report from Study
  Country: US (occurrence: US)
  Receive Date: 20250605
  Receipt Date: 20250605
  Transmission Date: 20250717
  Serious: Yes (Other)
  Sender: ABBVIE
  Company Number: US-ABBVIE-6159681

PATIENT
  Sex: Female

DRUGS (2)
  1. SKYRIZI [Suspect]
     Active Substance: RISANKIZUMAB-RZAA
     Indication: Psoriasis
     Route: 058
     Dates: start: 20220801
  2. SKYRIZI [Suspect]
     Active Substance: RISANKIZUMAB-RZAA
     Route: 058

REACTIONS (5)
  - Intestinal obstruction [Recovered/Resolved]
  - Cough [Not Recovered/Not Resolved]
  - Therapeutic response unexpected [Recovered/Resolved]
  - Chronic obstructive pulmonary disease [Unknown]
  - Rheumatoid arthritis [Recovering/Resolving]
